FAERS Safety Report 5386753-7 (Version None)
Quarter: 2007Q3

REPORT INFORMATION
  Report Type: 
  Country: None (occurrence: None)
  Receive Date: 20070713
  Receipt Date: 20060718
  Transmission Date: 20080115
  Serious: Yes (Life-Threatening, Hospitalization)
  Sender: FDA-Public Use
  Company Number: MX-PFIZER INC-2006082303

PATIENT
  Sex: Female
  Weight: 66 kg

DRUGS (3)
  1. SU-011,248 [Suspect]
     Indication: METASTATIC RENAL CELL CARCINOMA
     Route: 048
     Dates: start: 20060531, end: 20060625
  2. OMEPRAZOLE [Concomitant]
     Route: 048
  3. ENSURE [Concomitant]
     Route: 048
     Dates: start: 20060503

REACTIONS (3)
  - HEPATIC FAILURE [None]
  - THROMBOCYTOPENIA [None]
  - UPPER GASTROINTESTINAL HAEMORRHAGE [None]
